FAERS Safety Report 10228070 (Version 1)
Quarter: 2014Q2

REPORT INFORMATION
  Report Type: Spontaneous
  Country: US (occurrence: None)
  Receive Date: 20140609
  Receipt Date: 20140609
  Transmission Date: 20141212
  Serious: No
  Sender: FDA-Public Use
  Company Number: None

PATIENT
  Age: 50 Year
  Sex: Female
  Weight: 70.31 kg

DRUGS (1)
  1. CIPROFLOXACIN [Suspect]
     Indication: TOOTH DISORDER
     Dosage: 500 1 TABLET TWICE DAILY TAKEN BY MOUTH
     Route: 048
     Dates: start: 20140603, end: 20140606

REACTIONS (13)
  - Nausea [None]
  - Dizziness [None]
  - Fatigue [None]
  - Amnesia [None]
  - Constipation [None]
  - Muscle spasms [None]
  - Headache [None]
  - Balance disorder [None]
  - Feeling hot [None]
  - Anxiety [None]
  - Feeling abnormal [None]
  - Mental impairment [None]
  - Malaise [None]
